FAERS Safety Report 9949148 (Version 1)
Quarter: 2014Q1

REPORT INFORMATION
  Report Type: Spontaneous
  Country: US (occurrence: US)
  Receive Date: 20140304
  Receipt Date: 20140304
  Transmission Date: 20141002
  Serious: Yes (Other)
  Sender: FDA-Public Use
  Company Number: US-SUN PHARMACEUTICAL INDUSTRIES LTD-2014SUN00415

PATIENT
  Age: 24 Year
  Sex: Female

DRUGS (2)
  1. METFORMIN HCL 500MG TABLETS [Suspect]
     Indication: POLYCYSTIC OVARIES
     Route: 065
  2. ETHINYLESTRADIOL [Suspect]
     Indication: PRODUCT USED FOR UNKNOWN INDICATION
     Route: 065

REACTIONS (2)
  - Gastrointestinal disorder [Recovered/Resolved]
  - Hereditary angioedema [Recovered/Resolved]
